FAERS Safety Report 14122725 (Version 2)
Quarter: 2017Q4

REPORT INFORMATION
  Report Type: Report from Study
  Country: JP (occurrence: JP)
  Receive Date: 20171024
  Receipt Date: 20171128
  Transmission Date: 20180321
  Serious: No
  Sender: FDA-Public Use
  Company Number: JP-AMGEN-JPNNI2017161105

PATIENT
  Age: 58 Year
  Sex: Female
  Weight: 59 kg

DRUGS (13)
  1. PEGFILGRASTIM [Suspect]
     Active Substance: PEGFILGRASTIM
     Indication: COLONY STIMULATING FACTOR PROPHYLAXIS
     Dosage: 3.6 MG, UNK
     Route: 058
     Dates: start: 20170119, end: 20170119
  2. DOCETAXEL. [Concomitant]
     Active Substance: DOCETAXEL
     Dosage: 110 MG, UNK
     Route: 041
     Dates: start: 20170118, end: 20170118
  3. DOCETAXEL. [Concomitant]
     Active Substance: DOCETAXEL
     Dosage: 110 MG, UNK
     Route: 041
     Dates: start: 20170209, end: 20170209
  4. ENDOXAN                            /00021101/ [Concomitant]
     Active Substance: CYCLOPHOSPHAMIDE
     Indication: BREAST CANCER
     Dosage: 940 MG, UNK
     Route: 041
     Dates: start: 20170118, end: 20170118
  5. ENDOXAN                            /00021101/ [Concomitant]
     Active Substance: CYCLOPHOSPHAMIDE
     Dosage: 940 MG, UNK
     Route: 041
     Dates: start: 20170209, end: 20170209
  6. DOCETAXEL. [Concomitant]
     Active Substance: DOCETAXEL
     Indication: BREAST CANCER
     Dosage: 110 MG, UNK
     Route: 041
     Dates: start: 20170119, end: 20170119
  7. ENDOXAN                            /00021101/ [Concomitant]
     Active Substance: CYCLOPHOSPHAMIDE
     Dosage: 940 MG, UNK
     Route: 041
     Dates: start: 20170323, end: 20170323
  8. DOCETAXEL. [Concomitant]
     Active Substance: DOCETAXEL
     Dosage: 110 MG, UNK
     Route: 041
     Dates: start: 20170323, end: 20170323
  9. ENDOXAN                            /00021101/ [Concomitant]
     Active Substance: CYCLOPHOSPHAMIDE
     Dosage: 940 MG, UNK
     Route: 041
     Dates: start: 20170302, end: 20170302
  10. PEGFILGRASTIM [Suspect]
     Active Substance: PEGFILGRASTIM
     Dosage: 3.6 MG, UNK
     Route: 058
     Dates: start: 20170303, end: 20170303
  11. PEGFILGRASTIM [Suspect]
     Active Substance: PEGFILGRASTIM
     Dosage: 3.6 MG, UNK
     Route: 058
     Dates: start: 20170324, end: 20170324
  12. DOCETAXEL. [Concomitant]
     Active Substance: DOCETAXEL
     Dosage: 110 MG, UNK
     Route: 041
     Dates: start: 20170302, end: 20170302
  13. PEGFILGRASTIM [Suspect]
     Active Substance: PEGFILGRASTIM
     Dosage: 3.6 MG, UNK
     Route: 058
     Dates: start: 20170210, end: 20170210

REACTIONS (1)
  - Arthralgia [Recovering/Resolving]

NARRATIVE: CASE EVENT DATE: 20170124
